FAERS Safety Report 4387623-3 (Version None)
Quarter: 2004Q2

REPORT INFORMATION
  Report Type: 
  Country: None (occurrence: None)
  Receive Date: 20040630
  Receipt Date: 20040520
  Transmission Date: 20050107
  Serious: No
  Sender: FDA-Public Use
  Company Number: US-GLAXOSMITHKLINE-A0511612A

PATIENT
  Sex: Male

DRUGS (8)
  1. ADVAIR HFA [Suspect]
     Dosage: 1PUFF TWICE PER DAY
     Route: 055
     Dates: start: 20030101
  2. COMBIVENT [Concomitant]
  3. ATROVENT [Concomitant]
  4. METHYLPREDNISOLONE [Concomitant]
  5. SINGULAIR [Concomitant]
  6. COZAAR [Concomitant]
  7. ZOCOR [Concomitant]
  8. SEREVENT [Concomitant]

REACTIONS (1)
  - DRUG INEFFECTIVE [None]
